FAERS Safety Report 13643224 (Version 2)
Quarter: 2017Q3

REPORT INFORMATION
  Report Type: Spontaneous
  Country: BR (occurrence: BR)
  Receive Date: 20170612
  Receipt Date: 20170908
  Transmission Date: 20171127
  Serious: Yes (Death)
  Sender: FDA-Public Use
  Company Number: PHHY2017BR085265

PATIENT
  Age: 74 Year
  Sex: Male
  Weight: 80 kg

DRUGS (1)
  1. ZYKADIA [Suspect]
     Active Substance: CERITINIB
     Indication: NON-SMALL CELL LUNG CANCER
     Dosage: 5 DF, UNK (5 TABLETS)
     Route: 048
     Dates: start: 20170605

REACTIONS (1)
  - Sudden death [Fatal]

NARRATIVE: CASE EVENT DATE: 20170605
